FAERS Safety Report 22381818 (Version 1)
Quarter: 2023Q2

REPORT INFORMATION
  Report Type: Spontaneous
  Country: FR (occurrence: FR)
  Receive Date: 20230530
  Receipt Date: 20230530
  Transmission Date: 20230722
  Serious: Yes (Death)
  Sender: FDA-Public Use
  Company Number: FR-ALXN-A202307134

PATIENT
  Sex: Female

DRUGS (1)
  1. SOLIRIS [Suspect]
     Active Substance: ECULIZUMAB
     Indication: Atypical haemolytic uraemic syndrome
     Dosage: UNK, SINGLE
     Route: 065
     Dates: start: 20230520, end: 20230520

REACTIONS (1)
  - Palpitations [Fatal]

NARRATIVE: CASE EVENT DATE: 20230523
